FAERS Safety Report 14291853 (Version 1)
Quarter: 2017Q4

REPORT INFORMATION
  Report Type: Report from Study
  Country: US (occurrence: US)
  Receive Date: 20171215
  Receipt Date: 20171215
  Transmission Date: 20180321
  Serious: Yes (Death, Other)
  Sender: FDA-Public Use
  Company Number: US-SAOL THERAPEUTICS-2017SAO03457

PATIENT
  Age: 53 Year

DRUGS (16)
  1. DILAUDID [Suspect]
     Active Substance: HYDROMORPHONE HYDROCHLORIDE
     Dosage: 0.800 MG, \DAY
     Route: 037
     Dates: start: 20120313
  2. DILAUDID [Suspect]
     Active Substance: HYDROMORPHONE HYDROCHLORIDE
     Dosage: 1.117 MG, \DAY, MAX DOSE
     Route: 037
     Dates: start: 20120203, end: 20120313
  3. CLONIDINE. [Suspect]
     Active Substance: CLONIDINE
     Dosage: 80.06 ?G, \DAY
     Route: 037
     Dates: start: 20120203, end: 20120313
  4. COMPOUNDED BACLOFEN [Suspect]
     Active Substance: BACLOFEN
     Dosage: 80.00 ?G, \DAY
     Route: 037
     Dates: start: 20120313
  5. CLONIDINE. [Suspect]
     Active Substance: CLONIDINE
     Dosage: 106.67 ?G, \DAY
     Route: 037
     Dates: start: 20120313
  6. DILAUDID [Suspect]
     Active Substance: HYDROMORPHONE HYDROCHLORIDE
     Dosage: 1.508 MG, \DAY, MAX DOSE
     Route: 037
     Dates: start: 20120313
  7. BUPIVACAINE. [Suspect]
     Active Substance: BUPIVACAINE
     Dosage: 16.000 MG, \DAY
     Route: 037
     Dates: start: 20120313
  8. BUPIVACAINE. [Suspect]
     Active Substance: BUPIVACAINE
     Dosage: 30.178 MG, \DAY, MAX DOSE
     Route: 037
     Dates: start: 20120313
  9. CLONIDINE. [Suspect]
     Active Substance: CLONIDINE
     Dosage: 149.02 ?G, \DAY, MAX DOSE
     Route: 037
     Dates: start: 20120203, end: 20120313
  10. COMPOUNDED BACLOFEN [Suspect]
     Active Substance: BACLOFEN
     Dosage: 111.76 ?G, \DAY, MAX DOSE
     Route: 037
     Dates: start: 20120203, end: 20120313
  11. BUPIVACAINE. [Suspect]
     Active Substance: BUPIVACAINE
     Dosage: 12.008 MG, \DAY
     Route: 037
     Dates: start: 20120203, end: 20120313
  12. BUPIVACAINE. [Suspect]
     Active Substance: BUPIVACAINE
     Dosage: 22.352 MG, \DAY, MAX DOSE
     Route: 037
     Dates: start: 20120203, end: 20120313
  13. CLONIDINE. [Suspect]
     Active Substance: CLONIDINE
     Dosage: 201.18 ?G, \DAY, MAX DOSE
     Route: 037
     Dates: start: 20120313
  14. COMPOUNDED BACLOFEN [Suspect]
     Active Substance: BACLOFEN
     Dosage: 60.04 ?G, \DAY
     Route: 037
     Dates: start: 20120203, end: 20120313
  15. COMPOUNDED BACLOFEN [Suspect]
     Active Substance: BACLOFEN
     Dosage: 150.89 ?G, \DAY, MAX DOSE
     Route: 037
     Dates: start: 20120313
  16. DILAUDID [Suspect]
     Active Substance: HYDROMORPHONE HYDROCHLORIDE
     Dosage: 0.600 MG, \DAY
     Route: 037
     Dates: start: 20120203, end: 20120313

REACTIONS (2)
  - Disease progression [Unknown]
  - Squamous cell carcinoma [Fatal]

NARRATIVE: CASE EVENT DATE: 201203
